FAERS Safety Report 22053841 (Version 10)
Quarter: 2024Q2

REPORT INFORMATION
  Report Type: Report from Study
  Country: CA (occurrence: CA)
  Receive Date: 20230302
  Receipt Date: 20240626
  Transmission Date: 20240716
  Serious: No
  Sender: FDA-Public Use
  Company Number: CA-ROCHE-3298017

PATIENT
  Age: 53 Year
  Sex: Female

DRUGS (2)
  1. OCREVUS [Suspect]
     Active Substance: OCRELIZUMAB
     Indication: Relapsing-remitting multiple sclerosis
     Dosage: MORE DOSAGE INFORMATION IS 300 MG AT DAY 0 AND 14, THEN 600 MG EVERY 6 MONTHS
     Route: 042
     Dates: start: 20221005
  2. RAMIPRIL [Concomitant]
     Active Substance: RAMIPRIL

REACTIONS (16)
  - Fatigue [Unknown]
  - Cough [Not Recovered/Not Resolved]
  - Musculoskeletal stiffness [Unknown]
  - COVID-19 [Unknown]
  - COVID-19 [Unknown]
  - Multiple sclerosis [Unknown]
  - Stress [Not Recovered/Not Resolved]
  - Balance disorder [Unknown]
  - Menopausal symptoms [Not Recovered/Not Resolved]
  - Tension headache [Recovered/Resolved with Sequelae]
  - Hypertension [Unknown]
  - Brain fog [Recovered/Resolved]
  - Stress [Not Recovered/Not Resolved]
  - Diarrhoea [Not Recovered/Not Resolved]
  - Mammogram abnormal [Unknown]
  - Throat irritation [Not Recovered/Not Resolved]

NARRATIVE: CASE EVENT DATE: 20231001
